FAERS Safety Report 13945504 (Version 2)
Quarter: 2017Q3

REPORT INFORMATION
  Report Type: Spontaneous
  Country: US (occurrence: US)
  Receive Date: 20170907
  Receipt Date: 20170911
  Transmission Date: 20171128
  Serious: No
  Sender: FDA-Public Use
  Company Number: US-PFIZER INC-2017386084

PATIENT
  Age: 72 Year
  Sex: Male

DRUGS (1)
  1. CHANTIX [Suspect]
     Active Substance: VARENICLINE TARTRATE
     Dosage: 0.5 MG, 2X/DAY IN THE MORNING AND NIGHT
     Dates: start: 201701

REACTIONS (6)
  - Nausea [Unknown]
  - Pruritus [Unknown]
  - Dizziness [Unknown]
  - Malaise [Unknown]
  - Acne [Unknown]
  - Rash [Unknown]
